FAERS Safety Report 24297619 (Version 1)
Quarter: 2024Q3

REPORT INFORMATION
  Report Type: Spontaneous
  Country: US (occurrence: US)
  Receive Date: 20240909
  Receipt Date: 20240909
  Transmission Date: 20241017
  Serious: No
  Sender: STRIDES
  Company Number: US-STRIDES ARCOLAB LIMITED-2023SP016915

PATIENT
  Sex: Female

DRUGS (1)
  1. DOXEPIN HYDROCHLORIDE [Suspect]
     Active Substance: DOXEPIN HYDROCHLORIDE
     Indication: Insomnia
     Dosage: UNK; TABLETS
     Route: 048

REACTIONS (1)
  - Drug ineffective [Unknown]
